FAERS Safety Report 7405651-8 (Version None)
Quarter: 2011Q2

REPORT INFORMATION
  Report Type: 
  Country: None (occurrence: None)
  Receive Date: 20110411
  Receipt Date: 20110405
  Transmission Date: 20111010
  Serious: Yes (Hospitalization, Other)
  Sender: FDA-Public Use
  Company Number: US-ROCHE-688041

PATIENT
  Sex: Female
  Weight: 56.7 kg

DRUGS (1)
  1. ACCUTANE [Suspect]
     Indication: ACNE
     Route: 065
     Dates: start: 19950101, end: 19960101

REACTIONS (24)
  - PANIC ATTACK [None]
  - ANAEMIA [None]
  - ILEITIS [None]
  - RESTLESSNESS [None]
  - HAEMATOCHEZIA [None]
  - ANAL SKIN TAGS [None]
  - FATIGUE [None]
  - DECREASED APPETITE [None]
  - NECK INJURY [None]
  - HERNIA OBSTRUCTIVE [None]
  - PELVIC ABSCESS [None]
  - PELVIC PAIN [None]
  - CONSTIPATION [None]
  - WEIGHT DECREASED [None]
  - ANXIETY [None]
  - CROHN'S DISEASE [None]
  - DIARRHOEA [None]
  - BACK PAIN [None]
  - URINARY TRACT INFECTION [None]
  - INFLAMMATORY BOWEL DISEASE [None]
  - ABDOMINAL PAIN [None]
  - GASTROOESOPHAGEAL REFLUX DISEASE [None]
  - DRUG HYPERSENSITIVITY [None]
  - RESTLESS LEGS SYNDROME [None]
